FAERS Safety Report 6447823-5 (Version None)
Quarter: 2009Q4

REPORT INFORMATION
  Report Type: 
  Country: None (occurrence: None)
  Receive Date: 20091120
  Receipt Date: 20091020
  Transmission Date: 20100525
  Serious: No
  Sender: FDA-Public Use
  Company Number: A0806927A

PATIENT
  Age: 86 Year
  Sex: Male

DRUGS (5)
  1. VERAMYST [Suspect]
     Dosage: 37.5MCG SINGLE DOSE
     Route: 045
     Dates: start: 20090909, end: 20090909
  2. COUMADIN [Suspect]
  3. ENALAPRIL MALEATE [Concomitant]
  4. SOTALOL HCL [Concomitant]
  5. SIMVASTATIN [Concomitant]

REACTIONS (1)
  - EPISTAXIS [None]
